FAERS Safety Report 11126084 (Version 2)
Quarter: 2021Q3

REPORT INFORMATION
  Report Type: Report from Study
  Country: US (occurrence: US)
  Receive Date: 20150520
  Receipt Date: 20210804
  Transmission Date: 20211014
  Serious: Yes (Hospitalization, Other)
  Sender: FDA-Public Use
  Company Number: US-SA-2015SA058402

PATIENT
  Age: 54 Year
  Sex: Male

DRUGS (6)
  1. SOMA [Concomitant]
     Active Substance: CARISOPRODOL
     Indication: MUSCLE SPASMS
     Dosage: STRENGTH: 350 MG DOSAGE: 1?2 PER DAY AS NEEDED
     Dates: start: 2010
  2. TERIFLUNOMIDE. [Suspect]
     Active Substance: TERIFLUNOMIDE
     Dosage: 7 MG,QD
     Route: 048
     Dates: start: 20190912, end: 20191201
  3. PROVIGIL [Concomitant]
     Active Substance: MODAFINIL
     Indication: FATIGUE
     Dosage: STRENGTH: 100 MG DOSAGE: 1PER DAY IN AM
     Dates: start: 201503
  4. TECFIDERA [Suspect]
     Active Substance: DIMETHYL FUMARATE
     Indication: MULTIPLE SCLEROSIS
     Dosage: UNK
  5. OXYCODONE [Concomitant]
     Active Substance: OXYCODONE
     Indication: PAIN
     Dosage: EVERY 04 HOURS AS NEEDED; MAX. 5 PER DAY. STRENGTH: 30 MG DOSE: 1?2
     Dates: start: 2010
  6. TERIFLUNOMIDE. [Suspect]
     Active Substance: TERIFLUNOMIDE
     Indication: RELAPSING-REMITTING MULTIPLE SCLEROSIS
     Dosage: 7 MG,QD
     Route: 048
     Dates: start: 20150101, end: 20190101

REACTIONS (11)
  - Multiple sclerosis [Recovering/Resolving]
  - Pain in extremity [Recovering/Resolving]
  - False positive investigation result [Unknown]
  - Hospitalisation [Unknown]
  - Fall [Recovered/Resolved]
  - Hemianaesthesia [Recovered/Resolved]
  - Hallucination [Recovered/Resolved]
  - Tunnel vision [Recovering/Resolving]
  - Product dose omission issue [Unknown]
  - Pain [Recovered/Resolved]
  - Fatigue [Unknown]

NARRATIVE: CASE EVENT DATE: 201501
